FAERS Safety Report 17376174 (Version 1)
Quarter: 2020Q1

REPORT INFORMATION
  Report Type: Spontaneous
  Country: US (occurrence: US)
  Receive Date: 20200206
  Receipt Date: 20200206
  Transmission Date: 20200409
  Serious: Yes (Death, Life-Threatening, Hospitalization, Other)
  Sender: FDA-Public Use
  Company Number: US-LUPIN PHARMACEUTICALS INC.-2020-00461

PATIENT
  Age: 5 Month
  Sex: Male

DRUGS (1)
  1. METRONIDAZOLE. [Suspect]
     Active Substance: METRONIDAZOLE
     Indication: DIARRHOEA
     Dosage: UNK, 10-DAY COURSE
     Route: 048

REACTIONS (6)
  - Pseudomembranous colitis [Fatal]
  - Lactic acidosis [Unknown]
  - Cardiac arrest [Unknown]
  - Respiratory distress [Unknown]
  - Megacolon [Fatal]
  - Treatment failure [Unknown]
